FAERS Safety Report 8341939 (Version 4)
Quarter: 2012Q4

REPORT INFORMATION
  Report Type: Report from Study
  Country: JP (occurrence: JP)
  Receive Date: 20120118
  Receipt Date: 20120905
  Transmission Date: 20130627
  Serious: Yes (Hospitalization)
  Sender: FDA-Public Use
  Company Number: JP-ROCHE-1031197

PATIENT
  Age: 77 Year
  Sex: Male

DRUGS (16)
  1. RANIBIZUMAB [Suspect]
     Indication: AGE-RELATED MACULAR DEGENERATION
     Route: 050
     Dates: start: 20110412
  2. RANIBIZUMAB [Suspect]
     Route: 050
     Dates: start: 20110510
  3. RANIBIZUMAB [Suspect]
     Route: 050
     Dates: start: 20110607
  4. RANIBIZUMAB [Suspect]
     Route: 050
     Dates: start: 20111129
  5. RANIBIZUMAB [Suspect]
     Route: 050
     Dates: start: 20111005
  6. RANIBIZUMAB [Suspect]
     Route: 050
     Dates: start: 20111101
  7. CRAVIT [Concomitant]
     Route: 065
     Dates: start: 201103
  8. CRAVIT [Concomitant]
     Route: 065
     Dates: start: 201104, end: 201111
  9. SIGMART [Concomitant]
  10. CHOLEBINE [Concomitant]
  11. PLETAAL [Concomitant]
  12. REBAMIPIDE [Concomitant]
  13. OPALMON [Concomitant]
  14. METHYLCOBALAMIN [Concomitant]
  15. ALINAMIN F [Concomitant]
  16. NU-LOTAN [Concomitant]

REACTIONS (2)
  - Myocardial infarction [Recovering/Resolving]
  - Inappropriate schedule of drug administration [Unknown]
